FAERS Safety Report 9493695 (Version 1)
Quarter: 2013Q3

REPORT INFORMATION
  Report Type: Report from Study
  Country: GB (occurrence: GB)
  Receive Date: 20130902
  Receipt Date: 20130902
  Transmission Date: 20140515
  Serious: Yes (Death, Other)
  Sender: FDA-Public Use
  Company Number: GB-ROCHE-1267795

PATIENT
  Sex: Female
  Weight: 89 kg

DRUGS (4)
  1. RITUXIMAB [Suspect]
     Indication: RHEUMATOID ARTHRITIS
     Dosage: DATE OF LAST DOSE PRIOR TO SAE: 13/JUN/2013
     Route: 065
     Dates: start: 20130423
  2. HYDROXYCHLOROQUINE [Concomitant]
  3. METHOTREXATE [Concomitant]
  4. SULPHASALAZINE [Concomitant]

REACTIONS (4)
  - Cardiac failure congestive [Fatal]
  - Myocardial ischaemia [Fatal]
  - Hypertensive heart disease [Fatal]
  - Bronchopneumonia [Unknown]
